FAERS Safety Report 8061189-9 (Version None)
Quarter: 2012Q1

REPORT INFORMATION
  Report Type: 
  Country: None (occurrence: None)
  Receive Date: 20120120
  Receipt Date: 20120112
  Transmission Date: 20120608
  Serious: Yes (Other)
  Sender: FDA-Public Use
  Company Number: GB-ASTRAZENECA-2012SE02564

PATIENT
  Age: 0 Week
  Sex: Male
  Weight: 4.6 kg

DRUGS (3)
  1. BUDESONIDE [Suspect]
     Route: 064
  2. LAMOTRIGINE [Suspect]
     Route: 064
  3. PNEUMOVAX II [Suspect]
     Indication: IMMUNISATION
     Route: 064
     Dates: start: 20110119, end: 20110119

REACTIONS (1)
  - FOETAL DISTRESS SYNDROME [None]
